FAERS Safety Report 10747121 (Version 1)
Quarter: 2015Q1

REPORT INFORMATION
  Report Type: Report from Study
  Country: FR (occurrence: FR)
  Receive Date: 20150129
  Receipt Date: 20150129
  Transmission Date: 20150721
  Serious: Yes (Hospitalization)
  Sender: FDA-Public Use
  Company Number: FR-ROCHE-1162105

PATIENT
  Age: 70 Year
  Sex: Male

DRUGS (6)
  1. RITUXIMAB [Suspect]
     Active Substance: RITUXIMAB
     Indication: RHEUMATOID ARTHRITIS
     Route: 065
     Dates: start: 20041122
  2. INFLIXIMAB [Concomitant]
     Active Substance: INFLIXIMAB
  3. CORTANCYL [Concomitant]
     Active Substance: PREDNISONE
     Route: 065
  4. METHOTREXATE [Concomitant]
     Active Substance: METHOTREXATE
     Route: 065
  5. CYCLOSPORINE. [Concomitant]
     Active Substance: CYCLOSPORINE
  6. CORTANCYL [Concomitant]
     Active Substance: PREDNISONE
     Route: 065

REACTIONS (17)
  - Multi-organ disorder [Recovered/Resolved]
  - Depression [Recovered/Resolved]
  - Fatigue [Recovered/Resolved]
  - Peritonitis [Recovered/Resolved]
  - Urine abnormality [Recovered/Resolved]
  - Tachycardia [Recovered/Resolved]
  - Septic shock [Recovered/Resolved]
  - Lung disorder [Recovered/Resolved]
  - Gamma-glutamyltransferase increased [Recovered/Resolved]
  - Abdominal pain upper [Recovered/Resolved]
  - Diverticular perforation [Recovered/Resolved]
  - Ill-defined disorder [Recovered/Resolved]
  - Wound [Recovered/Resolved]
  - Ill-defined disorder [Recovered/Resolved]
  - Acute pulmonary oedema [Recovered/Resolved]
  - Purulent discharge [Recovered/Resolved]
  - Skin lesion [Recovered/Resolved]

NARRATIVE: CASE EVENT DATE: 20060327
